FAERS Safety Report 17088116 (Version 1)
Quarter: 2019Q4

REPORT INFORMATION
  Report Type: Spontaneous
  Country: US (occurrence: US)
  Receive Date: 20191128
  Receipt Date: 20191128
  Transmission Date: 20200122
  Serious: No
  Sender: FDA-Public Use
  Company Number: US-ELI_LILLY_AND_COMPANY-US201911012741

PATIENT
  Age: 60 Year
  Sex: Female

DRUGS (1)
  1. TRULICITY [Suspect]
     Active Substance: DULAGLUTIDE
     Indication: PRODUCT USED FOR UNKNOWN INDICATION
     Dosage: 1.5 MG, WEEKLY (1/W)
     Route: 065
     Dates: start: 201902

REACTIONS (4)
  - Constipation [Unknown]
  - Fungal infection [Not Recovered/Not Resolved]
  - Urticaria [Unknown]
  - Product dose omission [Unknown]

NARRATIVE: CASE EVENT DATE: 201904
